FAERS Safety Report 9670868 (Version 1)
Quarter: 2013Q4

REPORT INFORMATION
  Report Type: Report from Study
  Country: CO (occurrence: CO)
  Receive Date: 20131106
  Receipt Date: 20131106
  Transmission Date: 20140711
  Serious: Yes (Hospitalization)
  Sender: FDA-Public Use
  Company Number: PHHY2013CO124607

PATIENT
  Age: 5 Year
  Sex: Female
  Weight: 17.8 kg

DRUGS (7)
  1. EVEROLIMUS [Suspect]
     Indication: TUBEROUS SCLEROSIS
  2. VALPROIC ACID [Concomitant]
     Indication: EPILEPSY
     Dosage: 200 MG, UNK
     Dates: start: 20090601
  3. BUDESONIDE [Concomitant]
     Indication: ASTHMA
     Dosage: 200 UG, UNK
     Dates: start: 20110615
  4. LEVOTHYROXINE [Concomitant]
     Indication: HYPOTHYROIDISM
     Dosage: 25 MG, UNK
     Dates: start: 20120901
  5. SABRIL [Concomitant]
     Indication: EPILEPSY
     Dosage: 90 MG, UNK
     Dates: start: 20130615
  6. MAGNESIUM [Concomitant]
     Indication: GASTRITIS
     Dosage: 15 ML, UNK
     Dates: start: 20090201
  7. KEPPRA [Concomitant]
     Indication: EPILEPSY
     Dosage: 400 MG, UNK
     Dates: start: 20121201

REACTIONS (2)
  - Asthmatic crisis [Recovered/Resolved]
  - Bronchopneumonia [Recovered/Resolved]
